FAERS Safety Report 17577037 (Version 2)
Quarter: 2020Q3

REPORT INFORMATION
  Report Type: Spontaneous
  Country: US (occurrence: US)
  Receive Date: 20200324
  Receipt Date: 20200915
  Transmission Date: 20201102
  Serious: Yes (Other)
  Sender: FDA-Public Use
  Company Number: US-GILEAD-2020-0456126

PATIENT
  Age: 44 Year
  Sex: Male
  Weight: 77 kg

DRUGS (32)
  1. DEXILANT [Concomitant]
     Active Substance: DEXLANSOPRAZOLE
  2. NEXIUM I.V. [Concomitant]
     Active Substance: ESOMEPRAZOLE SODIUM
  3. RANITIDINE. [Concomitant]
     Active Substance: RANITIDINE
  4. ZOLOFT [Concomitant]
     Active Substance: SERTRALINE HYDROCHLORIDE
  5. BUTALBITAL, ACETAMINOPHEN, AND CAFFEINE [Concomitant]
     Active Substance: ACETAMINOPHEN\BUTALBITAL\CAFFEINE
  6. AZITHROMYCIN ANHYDROUS. [Concomitant]
     Active Substance: AZITHROMYCIN ANHYDROUS
  7. BUPROPION. [Concomitant]
     Active Substance: BUPROPION
  8. FLECAINIDE [Concomitant]
     Active Substance: FLECAINIDE
  9. LEVOFLOXACIN. [Concomitant]
     Active Substance: LEVOFLOXACIN
  10. FLECAINIDE ACETATE. [Concomitant]
     Active Substance: FLECAINIDE ACETATE
  11. FLECAINIDE [Concomitant]
     Active Substance: FLECAINIDE
  12. COMPLERA [Suspect]
     Active Substance: EMTRICITABINE\RILPIVIRINE HYDROCHLORIDE\TENOFOVIR DISOPROXIL FUMARATE
     Indication: HIV INFECTION
     Dosage: UNK
     Route: 048
     Dates: start: 2014, end: 2015
  13. CEFALEXIN [Concomitant]
     Active Substance: CEPHALEXIN
  14. FAMCICLOVIR. [Concomitant]
     Active Substance: FAMCICLOVIR
  15. PREDNISONE. [Concomitant]
     Active Substance: PREDNISONE
  16. TAMIFLU [Concomitant]
     Active Substance: OSELTAMIVIR PHOSPHATE
  17. TAMSULOSIN [Concomitant]
     Active Substance: TAMSULOSIN
  18. EPIVIR [Concomitant]
     Active Substance: LAMIVUDINE
  19. NITROSTAT [Concomitant]
     Active Substance: NITROGLYCERIN
  20. SERTRALINE [Concomitant]
     Active Substance: SERTRALINE HYDROCHLORIDE
  21. FENOFIBRATE. [Concomitant]
     Active Substance: FENOFIBRATE
  22. METOPROLOL. [Concomitant]
     Active Substance: METOPROLOL
  23. RAPAFLO [Concomitant]
     Active Substance: SILODOSIN
  24. SUSTIVA [Concomitant]
     Active Substance: EFAVIRENZ
  25. TRUVADA [Suspect]
     Active Substance: EMTRICITABINE\TENOFOVIR DISOPROXIL FUMARATE
     Indication: HIV INFECTION
     Dosage: UNK
     Route: 048
     Dates: start: 2015, end: 2016
  26. CIPROFLOXACIN. [Concomitant]
     Active Substance: CIPROFLOXACIN
  27. CLONAZEPAM. [Concomitant]
     Active Substance: CLONAZEPAM
  28. DESCOVY [Concomitant]
     Active Substance: EMTRICITABINE\TENOFOVIR ALAFENAMIDE FUMARATE
  29. PANTOPRAZOLE [Concomitant]
     Active Substance: PANTOPRAZOLE
  30. VIREAD [Suspect]
     Active Substance: TENOFOVIR DISOPROXIL FUMARATE
     Indication: HIV INFECTION
     Dosage: UNK
     Route: 048
     Dates: start: 2004, end: 2014
  31. BIKTARVY [Concomitant]
     Active Substance: BICTEGRAVIR SODIUM\EMTRICITABINE\TENOFOVIR ALAFENAMIDE FUMARATE
  32. MELATONIN [Concomitant]
     Active Substance: MELATONIN

REACTIONS (10)
  - Pain [Not Recovered/Not Resolved]
  - Ankle fracture [Unknown]
  - Renal impairment [Not Recovered/Not Resolved]
  - Anxiety [Not Recovered/Not Resolved]
  - Osteoporosis [Not Recovered/Not Resolved]
  - Tibia fracture [Unknown]
  - Emotional distress [Not Recovered/Not Resolved]
  - Anhedonia [Not Recovered/Not Resolved]
  - Bone density decreased [Unknown]
  - Economic problem [Unknown]

NARRATIVE: CASE EVENT DATE: 201004
